FAERS Safety Report 23343171 (Version 4)
Quarter: 2025Q3

REPORT INFORMATION
  Report Type: Report from Study
  Country: EU (occurrence: EU)
  Receive Date: 20231227
  Receipt Date: 20250803
  Transmission Date: 20251020
  Serious: Yes (Death, Hospitalization, Other)
  Sender: ALEXION PHARMACEUTICALS
  Company Number: 2023A289756

PATIENT
  Age: 71 Year
  Sex: Male
  Weight: 57 kg

DRUGS (3)
  1. OLAPARIB [Suspect]
     Active Substance: OLAPARIB
     Indication: Prostate cancer
     Dosage: 300 MILLIGRAM, BID
     Dates: start: 20231106
  2. DEGARELIX [Suspect]
     Active Substance: DEGARELIX
     Indication: Prostate cancer
  3. ABIRATERONE [Suspect]
     Active Substance: ABIRATERONE
     Indication: Prostate cancer

REACTIONS (2)
  - C-reactive protein increased [Fatal]
  - Off label use [Unknown]

NARRATIVE: CASE EVENT DATE: 20231117
